FAERS Safety Report 12880128 (Version 1)
Quarter: 2016Q4

REPORT INFORMATION
  Report Type: Spontaneous
  Country: AT (occurrence: AT)
  Receive Date: 20161025
  Receipt Date: 20161025
  Transmission Date: 20170207
  Serious: Yes (Hospitalization, Other)
  Sender: FDA-Public Use
  Company Number: AT-009507513-1610AUT001859

PATIENT
  Age: 77 Year
  Sex: Female
  Weight: 50 kg

DRUGS (12)
  1. JANUVIA [Suspect]
     Active Substance: SITAGLIPTIN PHOSPHATE
     Dosage: INCREASE OF DOSE (DAILY INTAKE)
     Route: 048
  2. SPIRIVA [Concomitant]
     Active Substance: TIOTROPIUM BROMIDE MONOHYDRATE
     Dosage: UNK, PRN (AS REQUIRED), FORMULATION: INHALER
     Route: 055
  3. BISOPROLOL [Concomitant]
     Active Substance: BISOPROLOL
     Dosage: 1 DF, QAM (1-0-0), STRENGTH REPORTED AS: 2.5 (UNITS NOT PROVIDED)
  4. DIAMICRON [Concomitant]
     Active Substance: GLICLAZIDE
     Dosage: 1 DF, QAM (1-0-0), STRENGTH REPORTED AS: 30 (UNITS NOT PROVIDED)
  5. RAMIPRIL. [Concomitant]
     Active Substance: RAMIPRIL
     Dosage: 1 DF, QPM (0-0-1), STRENGTH REPORTED AS: 2.5 (UNITS NOT PROVIDED)
  6. JANUVIA [Suspect]
     Active Substance: SITAGLIPTIN PHOSPHATE
     Dosage: UNK, WITH INTERRUPTIONS
     Route: 048
     Dates: start: 201508
  7. JANUVIA [Suspect]
     Active Substance: SITAGLIPTIN PHOSPHATE
     Dosage: REDUCTION OF DOSE; JANUVIA WAS TAKEN EVERY OTHER DAY ONLY
     Route: 048
  8. EUTHYROX [Concomitant]
     Active Substance: LEVOTHYROXINE SODIUM
     Dosage: 1 DF, QAM (1-0-0), STRENGTH REPORTED AS: 100 (UNITS NOT PROVIDED)
  9. LASIX [Concomitant]
     Active Substance: FUROSEMIDE
     Dosage: 1 DF, QAM (1-0-0), STRENGTH REPORTED AS 40 (UNITS NOT PROVIDED)
  10. SIMVASTATIN. [Concomitant]
     Active Substance: SIMVASTATIN
     Dosage: 0.5 DF, QPM (0-0-0.5), STRENGTH REPORTED AS: 40 (UNITS NOT PROVIDED)
     Route: 048
  11. JANUVIA [Suspect]
     Active Substance: SITAGLIPTIN PHOSPHATE
     Dosage: UNK
     Route: 048
     Dates: end: 201604
  12. HYDAL [Concomitant]
     Active Substance: HYDROMORPHONE HYDROCHLORIDE
     Dosage: 2 MG, BID (1-0-1)
     Route: 048

REACTIONS (6)
  - Diarrhoea [Recovering/Resolving]
  - Urinary tract infection [Unknown]
  - Chronic obstructive pulmonary disease [Unknown]
  - Renal failure [Unknown]
  - Dehydration [Recovered/Resolved]
  - Inappropriate schedule of drug administration [Unknown]

NARRATIVE: CASE EVENT DATE: 201508
